FAERS Safety Report 23982686 (Version 1)
Quarter: 2024Q2

REPORT INFORMATION
  Report Type: Spontaneous
  Country: US (occurrence: US)
  Receive Date: 20240617
  Receipt Date: 20240617
  Transmission Date: 20240716
  Serious: No
  Sender: FDA-Public Use
  Company Number: US-Calliditas-2024CAL01006

PATIENT
  Sex: Female

DRUGS (1)
  1. TARPEYO [Suspect]
     Active Substance: BUDESONIDE
     Indication: IgA nephropathy
     Dates: end: 202402

REACTIONS (4)
  - Weight increased [Unknown]
  - Hepatic steatosis [Unknown]
  - Cushingoid [Unknown]
  - Nausea [Unknown]
